FAERS Safety Report 8975165 (Version 1)
Quarter: 2012Q4

REPORT INFORMATION
  Report Type: 
  Country: MX (occurrence: MX)
  Receive Date: 20121220
  Receipt Date: 20121220
  Transmission Date: 20130627
  Serious: Yes (Death, Hospitalization)
  Sender: FDA-Public Use
  Company Number: PHHY2012MX117508

PATIENT
  Age: 60 Year
  Sex: Male

DRUGS (1)
  1. DIOVAN [Suspect]
     Dosage: 320 mg, daily
     Route: 048
     Dates: start: 20120324

REACTIONS (1)
  - Death [Fatal]
